FAERS Safety Report 4746026-X (Version None)
Quarter: 2005Q3

REPORT INFORMATION
  Report Type: 
  Country: None (occurrence: None)
  Receive Date: 20050816
  Receipt Date: 20050804
  Transmission Date: 20060218
  Serious: Yes (Other)
  Sender: FDA-Public Use
  Company Number: JP-BRISTOL-MYERS SQUIBB COMPANY-13074422

PATIENT
  Age: 15 Year
  Sex: Female

DRUGS (4)
  1. IFOSFAMIDE [Suspect]
     Indication: EWING'S SARCOMA
  2. DOXORUBICIN HCL [Suspect]
     Route: 042
  3. VINCRISTINE [Suspect]
  4. DACTINOMYCIN [Suspect]
     Route: 042

REACTIONS (2)
  - ACUTE LYMPHOCYTIC LEUKAEMIA [None]
  - TREATMENT RELATED SECONDARY MALIGNANCY [None]
